FAERS Safety Report 4629632-2 (Version None)
Quarter: 2005Q3

REPORT INFORMATION
  Report Type: 
  Country: None (occurrence: None)
  Receive Date: 20050406
  Receipt Date: 20050324
  Transmission Date: 20060218
  Serious: Yes (Hospitalization, Other)
  Sender: FDA-Public Use
  Company Number: 2005023892

PATIENT
  Age: 67 Year
  Sex: Female

DRUGS (7)
  1. ATARAX [Suspect]
     Indication: ILL-DEFINED DISORDER
     Dosage: 25 MG (1 D) INTRAMUSCULAR
     Route: 030
     Dates: start: 20050128, end: 20050128
  2. PENTAZOCINE LACTATE [Suspect]
     Indication: ILL-DEFINED DISORDER
     Dosage: 15 MG (15 MG, 1 IN 1D), INTRAMUSCULAR
     Route: 030
     Dates: start: 20050128
  3. DROPERIDOL [Suspect]
     Indication: ILL-DEFINED DISORDER
     Dosage: 1 ML (1 ML, 1 IN 1 D), INTRAVENOUS
     Route: 042
     Dates: start: 20050128
  4. NIFEDIPINE [Concomitant]
  5. TEPRENONE (TEPRENONE) [Concomitant]
  6. NICERITROL (NICERITROL) [Concomitant]
  7. ASPIRIN [Concomitant]

REACTIONS (4)
  - BLOOD PRESSURE INCREASED [None]
  - CEREBRAL INFARCTION [None]
  - COLD SWEAT [None]
  - NAUSEA [None]
